FAERS Safety Report 25442697 (Version 1)
Quarter: 2025Q2

REPORT INFORMATION
  Report Type: Spontaneous
  Country: CN (occurrence: CN)
  Receive Date: 20250617
  Receipt Date: 20250617
  Transmission Date: 20250716
  Serious: Yes (Hospitalization, Other)
  Sender: ALKEM
  Company Number: None

PATIENT
  Age: 59 Year
  Sex: Female

DRUGS (21)
  1. MYCOPHENOLATE MOFETIL [Suspect]
     Active Substance: MYCOPHENOLATE MOFETIL
     Indication: Immunosuppressant drug therapy
     Dosage: 750 MILLIGRAM, BID (EVERY 12 HOUR)
     Route: 065
  2. TACROLIMUS [Suspect]
     Active Substance: TACROLIMUS
     Indication: Immunosuppressant drug therapy
     Dosage: 1 GRAM, BID (EVERY 12 HOUR)
     Route: 065
  3. TACROLIMUS [Suspect]
     Active Substance: TACROLIMUS
     Dosage: 0.1 GRAM, QD (RECHALLENGE DOSE)
     Route: 065
  4. TACROLIMUS [Suspect]
     Active Substance: TACROLIMUS
     Dosage: 1 GRAM, QD
     Route: 065
  5. METHYLPREDNISOLONE [Suspect]
     Active Substance: METHYLPREDNISOLONE
     Indication: Immunosuppressant drug therapy
     Dosage: 80 MILLIGRAM, QD (EVERY 1 DAY)
     Route: 065
  6. METHYLPREDNISOLONE [Suspect]
     Active Substance: METHYLPREDNISOLONE
     Dosage: 40 MILLIGRAM, QD (EVERY 1 DAY)
     Route: 065
  7. METHYLPREDNISOLONE [Suspect]
     Active Substance: METHYLPREDNISOLONE
     Dosage: 32 MILLIGRAM, QD (EVERY 1 DAY)
     Route: 065
  8. METHYLPREDNISOLONE [Suspect]
     Active Substance: METHYLPREDNISOLONE
     Dosage: 24 MILLIGRAM, QD (EVERY 1 DAY)
     Route: 065
  9. METHYLPREDNISOLONE [Suspect]
     Active Substance: METHYLPREDNISOLONE
     Dosage: 22 MILLIGRAM, QD
     Route: 065
  10. METHYLPREDNISOLONE [Suspect]
     Active Substance: METHYLPREDNISOLONE
     Dosage: 28 MILLIGRAM, QD
     Route: 065
  11. METHYLPREDNISOLONE [Suspect]
     Active Substance: METHYLPREDNISOLONE
     Dosage: 40 MILLIGRAM, QD
     Route: 065
  12. METHYLPREDNISOLONE [Suspect]
     Active Substance: METHYLPREDNISOLONE
     Dosage: 20 MILLIGRAM, QD (DECREASED DOSE)
     Route: 065
  13. TOFACITINIB [Suspect]
     Active Substance: TOFACITINIB
     Indication: Dermatomyositis
     Dosage: 50 MILLIGRAM, BID (EVERY 12 HOUR) (ON 15 DAYS)
     Route: 065
  14. HUMAN IMMUNOGLOBULIN G [Suspect]
     Active Substance: HUMAN IMMUNOGLOBULIN G
     Indication: Adjuvant therapy
     Route: 042
  15. HUMAN IMMUNOGLOBULIN G [Suspect]
     Active Substance: HUMAN IMMUNOGLOBULIN G
     Route: 042
  16. TOCILIZUMAB [Suspect]
     Active Substance: TOCILIZUMAB
     Indication: Hyperferritinaemia
     Dosage: 8 MILLIGRAM/KILOGRAM, ONCE IN 2 WEEKS
     Route: 042
  17. MOSAPRIDE [Concomitant]
     Active Substance: MOSAPRIDE
     Indication: Gastrointestinal disorder
     Dosage: 5 MILLIGRAM, QD (EVERY 24 HOUR)
     Route: 065
  18. MOXIFLOXACIN [Concomitant]
     Active Substance: MOXIFLOXACIN
     Indication: Antibiotic therapy
     Dosage: 400 MILLIGRAM, QD (EVERY 1 DAY)
     Route: 042
  19. PANTOPRAZOLE [Concomitant]
     Active Substance: PANTOPRAZOLE
     Indication: Gastrointestinal disorder
     Dosage: 40 MILLIGRAM, QD (EVERY 1 DAY)
     Route: 042
  20. SULPERAZONE [Concomitant]
     Active Substance: CEFOPERAZONE SODIUM\SULBACTAM SODIUM
     Indication: Product used for unknown indication
     Dosage: 3 GRAM, TID
     Route: 065
  21. SULFAMETHOXAZOLE [Concomitant]
     Active Substance: SULFAMETHOXAZOLE
     Indication: Antifungal prophylaxis
     Dosage: 80 MILLIGRAMS, BID (EVERY 12 HOUR)
     Route: 065

REACTIONS (12)
  - Cardiotoxicity [Unknown]
  - Pericardial effusion [Recovering/Resolving]
  - Coagulopathy [Recovered/Resolved]
  - Thrombocytopenia [Recovered/Resolved]
  - Hyperkalaemia [Unknown]
  - Pseudomonas infection [Recovering/Resolving]
  - Nocardiosis [Recovering/Resolving]
  - Stenotrophomonas maltophilia pneumonia [Recovering/Resolving]
  - Aspergillus infection [Recovering/Resolving]
  - Cytomegalovirus infection reactivation [Recovering/Resolving]
  - Sepsis [Recovering/Resolving]
  - Pneumonia [Recovering/Resolving]
